FAERS Safety Report 13719312 (Version 1)
Quarter: 2017Q3

REPORT INFORMATION
  Report Type: Spontaneous
  Country: US (occurrence: US)
  Receive Date: 20170705
  Receipt Date: 20170705
  Transmission Date: 20171127
  Serious: No
  Sender: FDA-Public Use
  Company Number: US-PERRIGO-16US023166

PATIENT
  Age: 8 Month
  Sex: Female

DRUGS (1)
  1. LOPERAMIDE HYDROCHLORIDE. [Suspect]
     Active Substance: LOPERAMIDE HYDROCHLORIDE
     Indication: EXPOSURE DURING BREAST FEEDING
     Dosage: UNKNOWN, UNKNOWN
     Route: 048
     Dates: start: 20161222, end: 20161222

REACTIONS (1)
  - Exposure during breast feeding [Unknown]

NARRATIVE: CASE EVENT DATE: 20161222
